FAERS Safety Report 17360513 (Version 1)
Quarter: 2020Q1

REPORT INFORMATION
  Report Type: Spontaneous
  Country: US (occurrence: US)
  Receive Date: 20200131
  Receipt Date: 20200131
  Transmission Date: 20200409
  Serious: No
  Sender: FDA-Public Use
  Company Number: None

PATIENT
  Age: 61 Year
  Sex: Female

DRUGS (3)
  1. STELARA [Concomitant]
     Active Substance: USTEKINUMAB
  2. VITAMIN D3 [Concomitant]
     Active Substance: CHOLECALCIFEROL
  3. TALTZ [Suspect]
     Active Substance: IXEKIZUMAB
     Indication: PSORIASIS
     Dosage: ?          OTHER FREQUENCY:EVERY 4 WEEKS;?
     Route: 058

REACTIONS (6)
  - Injection site pain [None]
  - Injection site reaction [None]
  - Skin discolouration [None]
  - Pain of skin [None]
  - Urticaria [None]
  - Injection site discomfort [None]
